FAERS Safety Report 11517548 (Version 1)
Quarter: 2015Q3

REPORT INFORMATION
  Report Type: Spontaneous
  Country: US (occurrence: US)
  Receive Date: 20150917
  Receipt Date: 20150917
  Transmission Date: 20151125
  Serious: No
  Sender: FDA-Public Use
  Company Number: US-BAYER-2015-404749

PATIENT
  Sex: Female

DRUGS (1)
  1. DESONATE [Suspect]
     Active Substance: DESONIDE
     Indication: CHEILITIS
     Dosage: UNK
     Route: 061
     Dates: start: 2013

REACTIONS (3)
  - Expired product administered [None]
  - Skin fissures [None]
  - Product use issue [None]
